FAERS Safety Report 7369770-7 (Version None)
Quarter: 2011Q1

REPORT INFORMATION
  Report Type: 
  Country: None (occurrence: None)
  Receive Date: 20110323
  Receipt Date: 20110314
  Transmission Date: 20110831
  Serious: Yes (Other)
  Sender: FDA-Public Use
  Company Number: US-GENZYME-CERZ-1001950

PATIENT

DRUGS (4)
  1. BENADRYL [Concomitant]
     Indication: PREMEDICATION
     Dosage: 25 MG, Q2W
  2. PRENATAL VITAMINS [Concomitant]
     Indication: PREGNANCY
  3. ZANTAC [Concomitant]
     Indication: PRODUCT USED FOR UNKNOWN INDICATION
     Dosage: UNK
  4. CEREZYME [Suspect]
     Indication: GAUCHER'S DISEASE
     Dosage: 2800 U, Q2W
     Route: 042
     Dates: start: 20010101

REACTIONS (1)
  - ABORTION SPONTANEOUS [None]
